FAERS Safety Report 26214270 (Version 1)
Quarter: 2025Q4

REPORT INFORMATION
  Report Type: Spontaneous
  Country: US (occurrence: US)
  Receive Date: 20251230
  Receipt Date: 20251230
  Transmission Date: 20260118
  Serious: Yes (Death, Hospitalization, Other)
  Sender: FRESENIUS KABI
  Company Number: US-FreseniusKabi-FK202517948

PATIENT
  Age: 19 Year
  Sex: Male

DRUGS (1)
  1. VALPROIC ACID [Suspect]
     Active Substance: VALPROIC ACID
     Indication: Juvenile myoclonic epilepsy

REACTIONS (3)
  - Pancreatitis necrotising [Fatal]
  - Multiple organ dysfunction syndrome [Fatal]
  - Ventricular fibrillation [Fatal]
